FAERS Safety Report 10175938 (Version 2)
Quarter: 2014Q2

REPORT INFORMATION
  Report Type: Spontaneous
  Country: JP (occurrence: JP)
  Receive Date: 20140516
  Receipt Date: 20140613
  Transmission Date: 20141212
  Serious: Yes (Hospitalization)
  Sender: FDA-Public Use
  Company Number: JP-JNJFOC-20140506965

PATIENT
  Age: 66 Year
  Sex: Female

DRUGS (10)
  1. REMICADE [Suspect]
     Indication: CROHN^S DISEASE
     Dosage: THERAPY DURATION AS 5 DAYS.
     Route: 042
     Dates: start: 20111025
  2. REMICADE [Suspect]
     Indication: CROHN^S DISEASE
     Dosage: 1 DAY
     Route: 042
     Dates: start: 20140110, end: 20140110
  3. REMICADE [Suspect]
     Indication: CROHN^S DISEASE
     Dosage: FRO 10 DAYS
     Route: 042
     Dates: start: 20120629
  4. REMICADE [Suspect]
     Indication: CROHN^S DISEASE
     Route: 042
     Dates: start: 201403
  5. REMICADE [Suspect]
     Indication: CROHN^S DISEASE
     Route: 042
     Dates: start: 201110
  6. PENTASA [Concomitant]
     Route: 048
     Dates: start: 20101207
  7. REBAMIPIDE [Concomitant]
     Route: 048
     Dates: start: 20110916
  8. TAKEPRON [Concomitant]
     Route: 048
     Dates: start: 20120502
  9. IMURAN [Concomitant]
     Route: 048
     Dates: start: 20120526, end: 20140411
  10. CLOSTRIDIUM BUTYRICUM [Concomitant]
     Route: 048
     Dates: start: 20110916

REACTIONS (1)
  - Lung squamous cell carcinoma stage IV [Not Recovered/Not Resolved]
